FAERS Safety Report 9343201 (Version 1)
Quarter: 2013Q2

REPORT INFORMATION
  Report Type: Other
  Country: IT (occurrence: IT)
  Receive Date: 20130611
  Receipt Date: 20130611
  Transmission Date: 20140414
  Serious: Yes (Hospitalization)
  Sender: FDA-Public Use
  Company Number: IT-WATSON-2013-10726

PATIENT
  Age: 45 Year
  Sex: Female

DRUGS (3)
  1. DIAZEPAM (UNKNOWN) [Suspect]
     Indication: INTENTIONAL SELF-INJURY
     Dosage: 10 ML, SINGLE
     Route: 048
     Dates: start: 20130427, end: 20130427
  2. SPASMOMEN SOMATICO [Suspect]
     Indication: INTENTIONAL SELF-INJURY
     Dosage: 200 MG, SINGLE
     Route: 048
     Dates: start: 20130427, end: 20130427
  3. FEXOFENADINE                       /01314202/ [Concomitant]
     Indication: PRODUCT USED FOR UNKNOWN INDICATION
     Dosage: UNK
     Route: 065

REACTIONS (4)
  - Suicide attempt [Recovered/Resolved]
  - Toxicity to various agents [Recovered/Resolved]
  - Intentional drug misuse [Recovered/Resolved]
  - Overdose [Recovered/Resolved]
